FAERS Safety Report 18344520 (Version 1)
Quarter: 2020Q4

REPORT INFORMATION
  Report Type: Report from Study
  Country: US (occurrence: US)
  Receive Date: 20201005
  Receipt Date: 20201005
  Transmission Date: 20210114
  Serious: Yes (Hospitalization)
  Sender: FDA-Public Use
  Company Number: US-EISAI MEDICAL RESEARCH-EC-2017-030227

PATIENT
  Age: 61 Year
  Sex: Female
  Weight: 115 kg

DRUGS (4)
  1. LENVIMA [Suspect]
     Active Substance: LENVATINIB
     Route: 048
     Dates: start: 20200624, end: 202009
  2. LENVIMA [Suspect]
     Active Substance: LENVATINIB
     Indication: RENAL CANCER
     Route: 048
     Dates: start: 20170801
  3. LENVIMA [Suspect]
     Active Substance: LENVATINIB
     Route: 048
     Dates: start: 201805, end: 201806
  4. LENVIMA [Suspect]
     Active Substance: LENVATINIB
     Route: 048
     Dates: end: 201805

REACTIONS (13)
  - Procedural pain [Unknown]
  - Blood pressure increased [Unknown]
  - Insomnia [Unknown]
  - Peripheral swelling [Unknown]
  - Pain in extremity [Unknown]
  - Skin exfoliation [Unknown]
  - Paraesthesia [Unknown]
  - Headache [Unknown]
  - Decreased activity [Unknown]
  - Malaise [Unknown]
  - Gait disturbance [Recovered/Resolved]
  - Diarrhoea [Unknown]
  - Myalgia [Unknown]

NARRATIVE: CASE EVENT DATE: 2017
